FAERS Safety Report 9151163 (Version 3)
Quarter: 2014Q4

REPORT INFORMATION
  Report Type: Spontaneous
  Country: US (occurrence: US)
  Receive Date: 20130308
  Receipt Date: 20141231
  Transmission Date: 20150529
  Serious: Yes (Hospitalization, Other)
  Sender: FDA-Public Use
  Company Number: US-ROCHE-791958

PATIENT
  Age: 23 Year
  Sex: Male
  Weight: 63.56 kg

DRUGS (8)
  1. SOTRET [Suspect]
     Active Substance: ISOTRETINOIN
     Indication: ACNE
     Route: 065
     Dates: start: 1997, end: 1998
  2. AMNESTEEM [Suspect]
     Active Substance: ISOTRETINOIN
     Route: 065
     Dates: start: 200710, end: 200711
  3. SOTRET [Suspect]
     Active Substance: ISOTRETINOIN
     Route: 065
     Dates: start: 200711, end: 200712
  4. ACCUTANE [Suspect]
     Active Substance: ISOTRETINOIN
     Indication: ACNE
     Route: 065
     Dates: start: 199709, end: 199801
  5. SOTRET [Suspect]
     Active Substance: ISOTRETINOIN
     Route: 065
  6. AMNESTEEM [Suspect]
     Active Substance: ISOTRETINOIN
     Indication: ACNE
     Route: 065
     Dates: start: 1997, end: 1998
  7. ACCUTANE [Suspect]
     Active Substance: ISOTRETINOIN
     Route: 065
     Dates: start: 2007, end: 2008
  8. AMNESTEEM [Suspect]
     Active Substance: ISOTRETINOIN
     Route: 065

REACTIONS (10)
  - Colitis ulcerative [Unknown]
  - Large intestine polyp [Unknown]
  - Mental disorder [Unknown]
  - Depression [Unknown]
  - Crohn^s disease [Unknown]
  - Lip dry [Unknown]
  - Suicidal ideation [Unknown]
  - Alopecia [Unknown]
  - Emotional distress [Not Recovered/Not Resolved]
  - Inflammatory bowel disease [Unknown]

NARRATIVE: CASE EVENT DATE: 19971015
